FAERS Safety Report 4883398-X (Version None)
Quarter: 2006Q1

REPORT INFORMATION
  Report Type: 
  Country: None (occurrence: None)
  Receive Date: 20060117
  Receipt Date: 20060117
  Transmission Date: 20060701
  Serious: No
  Sender: FDA-Public Use
  Company Number: None

PATIENT
  Age: 58 Year
  Sex: Female
  Weight: 77.1115 kg

DRUGS (2)
  1. OXYCODONE/APAP 5MG/325MG MALLINCKRODT [Suspect]
     Indication: HUMERUS FRACTURE
     Dosage: 1-2 TALBLET EVERY 4-6 HOURS PO
     Route: 048
     Dates: start: 20051228, end: 20060104
  2. OXYCODONE/APAP 5MG/325MG MALLINCKRODT [Suspect]
     Indication: UPPER LIMB FRACTURE
     Dosage: 1-2 TALBLET EVERY 4-6 HOURS PO
     Route: 048
     Dates: start: 20051228, end: 20060104

REACTIONS (3)
  - DRUG INEFFECTIVE [None]
  - POOR QUALITY DRUG ADMINISTERED [None]
  - THERAPEUTIC RESPONSE UNEXPECTED WITH DRUG SUBSTITUTION [None]
